FAERS Safety Report 15981078 (Version 1)
Quarter: 2019Q1

REPORT INFORMATION
  Report Type: Spontaneous
  Country: US (occurrence: US)
  Receive Date: 20190219
  Receipt Date: 20190219
  Transmission Date: 20190418
  Serious: No
  Sender: FDA-Public Use
  Company Number: US-ENDO PHARMACEUTICALS INC-2018-020583

PATIENT
  Age: 75 Year
  Sex: Male
  Weight: 86.17 kg

DRUGS (3)
  1. METOPROLOL. [Concomitant]
     Active Substance: METOPROLOL
     Indication: HYPERTENSION
  2. XIAFLEX [Suspect]
     Active Substance: COLLAGENASE CLOSTRIDIUM HISTOLYTICUM
     Indication: DUPUYTREN^S CONTRACTURE
     Dosage: UNK MG, ONE INJECTION IN THE CORD OF THE^SMALL DIGIT^ ON THE LEFT HAND.
     Route: 026
     Dates: start: 20180103, end: 20180103
  3. PERCOCET [Concomitant]
     Active Substance: ACETAMINOPHEN\OXYCODONE HYDROCHLORIDE
     Indication: ARTHRALGIA

REACTIONS (5)
  - Temperature intolerance [Unknown]
  - Injection site movement impairment [Unknown]
  - Dupuytren^s contracture [Unknown]
  - Injection site pain [Not Recovered/Not Resolved]
  - Drug ineffective [Unknown]

NARRATIVE: CASE EVENT DATE: 2018
